FAERS Safety Report 23972123 (Version 1)
Quarter: 2024Q2

REPORT INFORMATION
  Report Type: Spontaneous
  Country: US (occurrence: US)
  Receive Date: 20240613
  Receipt Date: 20240613
  Transmission Date: 20240716
  Serious: Yes (Death, Other)
  Sender: FDA-Public Use
  Company Number: US-AMGEN-USASP2024112821

PATIENT

DRUGS (1)
  1. PREDNISONE [Suspect]
     Active Substance: PREDNISONE
     Indication: Acute graft versus host disease
     Dosage: UNK UNK, QD, MILLIGRAM/KILOGRAM
     Route: 065

REACTIONS (6)
  - Acute graft versus host disease [Fatal]
  - Staphylococcal bacteraemia [Unknown]
  - Lactobacillus bacteraemia [Unknown]
  - Rash [Unknown]
  - Therapy partial responder [Unknown]
  - Therapy non-responder [Unknown]
